FAERS Safety Report 7180263-2 (Version None)
Quarter: 2010Q4

REPORT INFORMATION
  Report Type: 
  Country: None (occurrence: None)
  Receive Date: 20101209
  Receipt Date: 20101124
  Transmission Date: 20110411
  Serious: Yes (Other)
  Sender: FDA-Public Use
  Company Number: 022861

PATIENT
  Sex: Female
  Weight: 90.9 kg

DRUGS (2)
  1. CIMZIA [Suspect]
     Indication: RHEUMATOID ARTHRITIS
     Dosage: 400 MG 1X/2 WEEKS, SUBCUTANEOUS; 200 MG 1X/2 WEEKS, SUBCUTANEOUS
     Route: 058
     Dates: start: 20100301, end: 20100401
  2. CIMZIA [Suspect]
     Indication: RHEUMATOID ARTHRITIS
     Dosage: 400 MG 1X/2 WEEKS, SUBCUTANEOUS; 200 MG 1X/2 WEEKS, SUBCUTANEOUS
     Route: 058
     Dates: start: 20100501

REACTIONS (7)
  - ABDOMINAL DISTENSION [None]
  - DYSPNOEA [None]
  - HERPES VIRUS INFECTION [None]
  - LUNG INFECTION [None]
  - RESPIRATORY DISTRESS [None]
  - WEIGHT INCREASED [None]
  - WHEEZING [None]
